FAERS Safety Report 23481813 (Version 1)
Quarter: 2024Q1

REPORT INFORMATION
  Report Type: Spontaneous
  Country: HU (occurrence: HU)
  Receive Date: 20240205
  Receipt Date: 20240205
  Transmission Date: 20240409
  Serious: Yes (Other)
  Sender: FDA-Public Use
  Company Number: HU-BRISTOL-MYERS SQUIBB COMPANY-2024-016945

PATIENT

DRUGS (2)
  1. NIVOLUMAB [Suspect]
     Active Substance: NIVOLUMAB
     Indication: Ocular melanoma
     Dosage: DOSE : UNAVAILABLE;     FREQ : UNAVAILABLE
     Dates: start: 20230720
  2. IPILIMUMAB [Suspect]
     Active Substance: IPILIMUMAB
     Indication: Ocular melanoma
     Dates: start: 20230720

REACTIONS (1)
  - Toxic epidermal necrolysis [Unknown]
